FAERS Safety Report 12296429 (Version 1)
Quarter: 2016Q2

REPORT INFORMATION
  Report Type: Spontaneous
  Country: IT (occurrence: IT)
  Receive Date: 20160422
  Receipt Date: 20160422
  Transmission Date: 20160815
  Serious: Yes (Hospitalization)
  Sender: FDA-Public Use
  Company Number: IT-BAYER-2016-070455

PATIENT
  Age: 76 Year
  Sex: Male

DRUGS (11)
  1. CARDICOR [Concomitant]
     Active Substance: BISOPROLOL
     Dosage: UNK
     Route: 048
  2. MOXIFLOXACIN ORAL [Suspect]
     Active Substance: MOXIFLOXACIN
     Indication: PRODUCTIVE COUGH
     Dosage: DAILY DOSE 400 MG
     Route: 048
     Dates: start: 20160322, end: 20160330
  3. CEFTRIAXONE SODIUM. [Suspect]
     Active Substance: CEFTRIAXONE SODIUM
     Indication: PRODUCTIVE COUGH
     Dosage: DAILY DOSE 1 G
     Route: 030
     Dates: start: 20160322, end: 20160330
  4. BLOPRESS [Concomitant]
     Active Substance: CANDESARTAN CILEXETIL
     Route: 048
  5. CEFTRIAXONE SODIUM. [Suspect]
     Active Substance: CEFTRIAXONE SODIUM
     Indication: PYREXIA
  6. ALLOPURINOL. [Concomitant]
     Active Substance: ALLOPURINOL
     Dosage: UNK
     Route: 048
  7. MOXIFLOXACIN ORAL [Suspect]
     Active Substance: MOXIFLOXACIN
     Indication: PYREXIA
  8. TORVAST [Suspect]
     Active Substance: ATORVASTATIN
     Dosage: DAILY DOSE 10 MG
     Route: 048
     Dates: start: 20140930
  9. MEDROL [Concomitant]
     Active Substance: METHYLPREDNISOLONE
     Indication: MYALGIA
     Dosage: 8 MG, QD
     Route: 048
     Dates: start: 20160329
  10. NORVASC [Concomitant]
     Active Substance: AMLODIPINE BESYLATE
     Dosage: UNK
     Route: 048
  11. TICLOPIDINE [Concomitant]
     Active Substance: TICLOPIDINE
     Dosage: UNK
     Route: 048

REACTIONS (3)
  - Pain in extremity [Recovered/Resolved]
  - Mechanical urticaria [Recovered/Resolved]
  - Pruritus [Recovered/Resolved]

NARRATIVE: CASE EVENT DATE: 20160402
